FAERS Safety Report 8681614 (Version 2)
Quarter: 2012Q4

REPORT INFORMATION
  Report Type: 
  Country: US (occurrence: US)
  Receive Date: 20120725
  Receipt Date: 20120920
  Transmission Date: 20130627
  Serious: Yes (Hospitalization, Other)
  Sender: FDA-Public Use
  Company Number: US-ROXANE LABORATORIES, INC.-2012-RO-01562RO

PATIENT
  Age: 68 Year
  Sex: Female

DRUGS (23)
  1. PREDNISONE [Suspect]
     Indication: MULTIPLE MYELOMA
     Dosage: 10 mg
     Route: 048
     Dates: start: 20110925, end: 20120619
  2. PREDNISONE [Suspect]
     Dosage: 5 mg
     Route: 048
     Dates: start: 20120620
  3. OXYCONTIN [Concomitant]
     Dosage: 80 mg
  4. LUVOX [Concomitant]
     Dosage: 150 mg
  5. WELLBUTRIN [Concomitant]
     Dosage: 150 mg
  6. BUSPAR [Concomitant]
     Dosage: 60 mg
  7. CELEBREX [Concomitant]
  8. NEXIUM [Concomitant]
  9. NEURONTIN [Concomitant]
     Dosage: 1200 mg
  10. COUMADIN [Concomitant]
  11. LASIX [Concomitant]
     Dosage: 20 mg
  12. GLUCOTROL [Concomitant]
     Dosage: 5 mg
  13. LISINOPRIL [Concomitant]
     Dosage: 5 mg
  14. PRILOSEC [Concomitant]
     Dosage: 20 mg
  15. SENOKOT [Concomitant]
  16. OXYCODONE [Concomitant]
  17. INSULIN [Concomitant]
  18. K+ [Concomitant]
  19. ATIVAN [Concomitant]
  20. MVI [Concomitant]
  21. IRON [Concomitant]
  22. VITAMIN D3 [Concomitant]
  23. ENTOCORT [Concomitant]

REACTIONS (8)
  - Arthralgia [Recovered/Resolved]
  - Pain [Recovered/Resolved]
  - Fall [Unknown]
  - Agitation [Recovered/Resolved]
  - Hypoxia [Recovered/Resolved]
  - Pulmonary embolism [Recovered/Resolved]
  - Delirium [Recovered/Resolved]
  - Psychotic disorder [Recovered/Resolved]
